FAERS Safety Report 6710223-4 (Version None)
Quarter: 2010Q2

REPORT INFORMATION
  Report Type: 
  Country: None (occurrence: None)
  Receive Date: 20100504
  Receipt Date: 20100419
  Transmission Date: 20101027
  Serious: Yes (Death)
  Sender: FDA-Public Use
  Company Number: BE-GENENTECH-286125

PATIENT
  Age: 87 Year
  Sex: Male

DRUGS (10)
  1. MABTHERA [Suspect]
     Indication: DIFFUSE LARGE B-CELL LYMPHOMA
     Dosage: 375 MG/M2, Q3W
     Route: 042
     Dates: start: 20080601, end: 20080701
  2. PEGFILGRASTIM [Suspect]
     Indication: PROPHYLAXIS
     Dosage: UNK
     Route: 065
  3. METHYLPREDNISOLONE [Concomitant]
     Indication: DIFFUSE LARGE B-CELL LYMPHOMA
     Dosage: UNK
     Dates: start: 20080601, end: 20080701
  4. CYCLOPHOSPHAMIDE [Concomitant]
     Indication: DIFFUSE LARGE B-CELL LYMPHOMA
     Dosage: UNK
     Dates: start: 20080601, end: 20080701
  5. OXALIPLATIN [Concomitant]
     Indication: DRUG USE FOR UNKNOWN INDICATION
     Dosage: UNK
     Dates: start: 20080601, end: 20080701
  6. DOXORUBICIN HCL [Concomitant]
     Indication: DIFFUSE LARGE B-CELL LYMPHOMA
     Dosage: UNK
     Dates: start: 20080601, end: 20080701
  7. VINCRISTINE [Concomitant]
     Indication: DIFFUSE LARGE B-CELL LYMPHOMA
     Dosage: UNK
     Dates: start: 20080601
  8. ALLOPURINOL [Concomitant]
     Indication: DRUG USE FOR UNKNOWN INDICATION
  9. ANTIVITAMIN K [Concomitant]
     Indication: DRUG USE FOR UNKNOWN INDICATION
  10. ANGIOTENSIN II RECEPTOR ANTAGONISTS [Concomitant]
     Indication: DRUG USE FOR UNKNOWN INDICATION

REACTIONS (2)
  - INTERSTITIAL LUNG DISEASE [None]
  - RESPIRATORY FAILURE [None]
